FAERS Safety Report 4409778-4 (Version None)
Quarter: 2004Q3

REPORT INFORMATION
  Report Type: 
  Country: None (occurrence: None)
  Receive Date: 20040726
  Receipt Date: 20040614
  Transmission Date: 20050211
  Serious: Yes (Hospitalization)
  Sender: FDA-Public Use
  Company Number: A02200402007

PATIENT
  Age: 65 Year
  Sex: Male

DRUGS (3)
  1. ELOXATIN [Suspect]
     Indication: METASTASES TO LIVER
     Dosage: 185 MG OTHER INTRAVENOUS NOS
     Route: 042
     Dates: start: 20040518, end: 20040518
  2. ELOXATIN [Suspect]
     Indication: PANCREATIC CARCINOMA
     Dosage: 185 MG OTHER INTRAVENOUS NOS
     Route: 042
     Dates: start: 20040518, end: 20040518
  3. GEMZAR [Concomitant]

REACTIONS (3)
  - BACK PAIN [None]
  - MUSCLE CRAMP [None]
  - VOMITING [None]
